FAERS Safety Report 12216753 (Version 1)
Quarter: 2016Q1

REPORT INFORMATION
  Report Type: Spontaneous
  Country: US (occurrence: US)
  Receive Date: 20160329
  Receipt Date: 20160329
  Transmission Date: 20160526
  Serious: No
  Sender: FDA-Public Use
  Company Number: US-PFIZER INC-2016142297

PATIENT
  Age: 19 Year
  Sex: Female
  Weight: 52 kg

DRUGS (2)
  1. PRENATAL VITAMINS [Concomitant]
     Active Substance: VITAMINS
     Indication: PRENATAL CARE
     Dosage: 1 MG; 1MG FOLIC ACID MULTIVITAMIN AND MULTIMINERAL DOSE ACCORDING TO PRODUCT
     Dates: start: 201601
  2. ZITHROMAX [Suspect]
     Active Substance: AZITHROMYCIN DIHYDRATE
     Indication: CHLAMYDIAL INFECTION
     Dosage: 4 DF, SINGLE
     Route: 048
     Dates: start: 20160301, end: 20160301

REACTIONS (1)
  - Vomiting [Unknown]

NARRATIVE: CASE EVENT DATE: 20160301
